FAERS Safety Report 10144869 (Version 1)
Quarter: 2014Q2

REPORT INFORMATION
  Report Type: Spontaneous
  Country: US (occurrence: US)
  Receive Date: 20140430
  Receipt Date: 20140430
  Transmission Date: 20141212
  Serious: Yes (Hospitalization)
  Sender: FDA-Public Use
  Company Number: US-SA-2014SA023145

PATIENT
  Age: 91 Year
  Sex: Male

DRUGS (2)
  1. LOVENOX [Suspect]
     Indication: ANTICOAGULANT THERAPY
     Route: 065
     Dates: start: 20140203
  2. LOVENOX [Suspect]
     Indication: INTERNATIONAL NORMALISED RATIO DECREASED
     Route: 065
     Dates: start: 20140203

REACTIONS (1)
  - Procedural haemorrhage [Not Recovered/Not Resolved]
